FAERS Safety Report 8274408-0 (Version None)
Quarter: 2012Q2

REPORT INFORMATION
  Report Type: 
  Country: None (occurrence: None)
  Receive Date: 20120411
  Receipt Date: 20120404
  Transmission Date: 20120825
  Serious: Yes (Life-Threatening, Hospitalization)
  Sender: FDA-Public Use
  Company Number: CA-JNJFOC-20120305035

PATIENT
  Sex: Male
  Weight: 68.04 kg

DRUGS (2)
  1. REMICADE [Suspect]
     Indication: CROHN'S DISEASE
     Route: 042
  2. REMICADE [Suspect]
     Route: 042
     Dates: end: 20120223

REACTIONS (3)
  - LUNG INFECTION [None]
  - HISTOPLASMOSIS [None]
  - HYPERSENSITIVITY [None]
